FAERS Safety Report 5191726-3 (Version None)
Quarter: 2006Q4

REPORT INFORMATION
  Report Type: 
  Country: None (occurrence: None)
  Receive Date: 20061219
  Receipt Date: 20061206
  Transmission Date: 20070319
  Serious: Yes (Other)
  Sender: FDA-Public Use
  Company Number: 2006126662

PATIENT
  Age: 59 Year
  Sex: Female
  Weight: 49.5 kg

DRUGS (10)
  1. VFEND [Suspect]
     Indication: BRONCHOPULMONARY ASPERGILLOSIS
     Dosage: 600 MG (200 MG, 2 IN 1 D) ORAL; 400 MG (200 MG, 2 IN 1 D) ORAL
     Route: 048
     Dates: start: 20060930, end: 20061001
  2. VFEND [Suspect]
     Indication: BRONCHOPULMONARY ASPERGILLOSIS
     Dosage: 600 MG (200 MG, 2 IN 1 D) ORAL; 400 MG (200 MG, 2 IN 1 D) ORAL
     Route: 048
     Dates: start: 20061001, end: 20061012
  3. TACROLIMUS [Concomitant]
  4. PROGRAF [Concomitant]
  5. PREDNISOLONE [Concomitant]
  6. MUCOSOLVAN (AMBROXOL HYDROCHLORIDE) [Concomitant]
  7. GASTROM (ECABET MONOSODIUM) [Concomitant]
  8. SULFAMETHOXAZOLE + TRIMETHOPRIM [Concomitant]
  9. HOKUNALIN (TULOBUTEROL HYDROCHLORIDE) [Concomitant]
  10. ROXATIDINE ACETATE HCL [Concomitant]

REACTIONS (4)
  - BLOOD BILIRUBIN INCREASED [None]
  - GAMMA-GLUTAMYLTRANSFERASE INCREASED [None]
  - INAPPROPRIATE ANTIDIURETIC HORMONE SECRETION [None]
  - LIVER DISORDER [None]
